FAERS Safety Report 5718948-4 (Version None)
Quarter: 2008Q2

REPORT INFORMATION
  Report Type: 
  Country: None (occurrence: None)
  Receive Date: 20080423
  Receipt Date: 20080408
  Transmission Date: 20081010
  Serious: Yes (Hospitalization, Disabling)
  Sender: FDA-Public Use
  Company Number: 2008S1005828

PATIENT
  Age: 39 Year
  Sex: Female

DRUGS (2)
  1. LISINOPRIL [Suspect]
     Indication: HYPERTENSION
     Dosage: 10 MG; ORAL
     Route: 048
     Dates: start: 20070901, end: 20080301
  2. ESOMEPRAZOLE [Concomitant]

REACTIONS (1)
  - PANCREATITIS [None]
